FAERS Safety Report 10285929 (Version 1)
Quarter: 2014Q3

REPORT INFORMATION
  Report Type: Spontaneous
  Country: US (occurrence: None)
  Receive Date: 20140703
  Receipt Date: 20140703
  Transmission Date: 20150326
  Serious: Yes (Life-Threatening)
  Sender: FDA-Public Use
  Company Number: None

PATIENT
  Age: 23 Year
  Sex: Female

DRUGS (3)
  1. OXYCODONE IMMEDIATE RELEASE [Suspect]
     Active Substance: OXYCODONE
     Indication: SPINAL FRACTURE
     Dosage: 1 PILL TWICE DAILY
     Dates: start: 20140621, end: 20140622
  2. OXYCODONE IMMEDIATE RELEASE [Suspect]
     Active Substance: OXYCODONE
     Indication: ROAD TRAFFIC ACCIDENT
     Dosage: 1 PILL TWICE DAILY
     Dates: start: 20140621, end: 20140622
  3. OXYCODONE IMMEDIATE RELEASE [Suspect]
     Active Substance: OXYCODONE
     Indication: PAIN
     Dosage: 1 PILL TWICE DAILY
     Dates: start: 20140621, end: 20140622

REACTIONS (8)
  - Wrong drug administered [None]
  - Activities of daily living impaired [None]
  - Drug dispensing error [None]
  - Feeling abnormal [None]
  - Decreased appetite [None]
  - Aphagia [None]
  - Vomiting [None]
  - Hypersomnia [None]

NARRATIVE: CASE EVENT DATE: 20140621
